FAERS Safety Report 19105063 (Version 1)
Quarter: 2021Q2

REPORT INFORMATION
  Report Type: Spontaneous
  Country: IT (occurrence: IT)
  Receive Date: 20210408
  Receipt Date: 20210408
  Transmission Date: 20210717
  Serious: Yes (Death, Other)
  Sender: FDA-Public Use
  Company Number: IT-AUROBINDO-AUR-APL-2021-014440

PATIENT
  Age: 56 Year
  Sex: Female

DRUGS (1)
  1. LEVETIRACETAM. [Suspect]
     Active Substance: LEVETIRACETAM
     Indication: PARTIAL SEIZURES
     Dosage: 2000 MILLIGRAM, ONCE A DAY
     Route: 065

REACTIONS (7)
  - Dementia [Fatal]
  - Ataxia [Unknown]
  - Blindness cortical [Fatal]
  - Dystonia [Unknown]
  - Encephalopathy [Unknown]
  - Diabetes mellitus [Fatal]
  - Partial seizures [Unknown]
